FAERS Safety Report 21144434 (Version 2)
Quarter: 2022Q3

REPORT INFORMATION
  Report Type: Spontaneous
  Country: US (occurrence: US)
  Receive Date: 20220728
  Receipt Date: 20220906
  Transmission Date: 20221026
  Serious: Yes (Other)
  Sender: FDA-Public Use
  Company Number: US-PFIZER INC-PV202200029878

PATIENT
  Age: 75 Year
  Sex: Male

DRUGS (1)
  1. INLYTA [Suspect]
     Active Substance: AXITINIB
     Dosage: UNK

REACTIONS (13)
  - Hypertension [Unknown]
  - Weight decreased [Unknown]
  - Headache [Unknown]
  - Decreased appetite [Unknown]
  - Dry throat [Unknown]
  - Dehydration [Unknown]
  - Heart rate irregular [Unknown]
  - Fatigue [Unknown]
  - Poor quality sleep [Unknown]
  - Product dose omission issue [Unknown]
  - Feeling abnormal [Unknown]
  - Insomnia [Unknown]
  - Asthenia [Unknown]

NARRATIVE: CASE EVENT DATE: 20220724
